FAERS Safety Report 11546747 (Version 1)
Quarter: 2015Q3

REPORT INFORMATION
  Report Type: Spontaneous
  Country: US (occurrence: US)
  Receive Date: 20150924
  Receipt Date: 20150924
  Transmission Date: 20151125
  Serious: No
  Sender: FDA-Public Use
  Company Number: US-PFIZER INC-2015299129

PATIENT
  Age: 62 Year
  Sex: Male
  Weight: 109 kg

DRUGS (3)
  1. METOPROLOL [Concomitant]
     Active Substance: METOPROLOL
     Indication: CARDIAC DISORDER
     Dosage: 75 MG, 2X/DAY
     Route: 048
     Dates: start: 2013
  2. TIKOSYN [Suspect]
     Active Substance: DOFETILIDE
     Indication: ATRIAL FIBRILLATION
     Dosage: 250 ?G, 2X/DAY
     Route: 048
     Dates: start: 2014
  3. OXYCODONE HYDROCHLORIDE AND ACETAMINOPHEN [Suspect]
     Active Substance: ACETAMINOPHEN\OXYCODONE HYDROCHLORIDE
     Indication: PAIN
     Dosage: UNK
     Dates: start: 20150902

REACTIONS (2)
  - Pain [Unknown]
  - Vision blurred [Unknown]

NARRATIVE: CASE EVENT DATE: 201509
